FAERS Safety Report 6753077-2 (Version None)
Quarter: 2010Q2

REPORT INFORMATION
  Report Type: 
  Country: None (occurrence: None)
  Receive Date: 20100602
  Receipt Date: 20100602
  Transmission Date: 20101027
  Serious: Yes (Disabling)
  Sender: FDA-Public Use
  Company Number: None

PATIENT
  Age: 45 Year
  Sex: Female
  Weight: 120.2032 kg

DRUGS (1)
  1. GENTAMICIN [Suspect]
     Indication: BACTERIAL INFECTION
     Dosage: I HAD A CENTRAL LINE
     Dates: start: 20090501, end: 20090601

REACTIONS (6)
  - DANDY-WALKER SYNDROME [None]
  - DRUG TOXICITY [None]
  - FEELING DRUNK [None]
  - RENAL FAILURE [None]
  - VESTIBULAR NEURONITIS [None]
  - VOMITING [None]
